FAERS Safety Report 8770644 (Version 1)
Quarter: 2012Q4

REPORT INFORMATION
  Report Type: 
  Country: US (occurrence: US)
  Receive Date: 20120906
  Receipt Date: 20120906
  Transmission Date: 20130627
  Serious: Yes (Other)
  Sender: FDA-Public Use
  Company Number: US-MYLANLABS-2012S1017708

PATIENT
  Age: 7 Day
  Sex: Male

DRUGS (5)
  1. FLECAINIDE [Suspect]
     Indication: ATRIAL TACHYCARDIA
     Dosage: 80 mg/m2/d
     Route: 048
  2. AMIODARONE [Interacting]
     Indication: ATRIAL TACHYCARDIA
     Dosage: bolus doses; followed by 15 mg/kg/d drip
     Route: 065
  3. AMIODARONE [Interacting]
     Indication: ATRIAL TACHYCARDIA
     Dosage: 15 mg/kg/d drip
     Route: 065
  4. ESMOLOL [Concomitant]
     Indication: ATRIAL TACHYCARDIA
     Dosage: 50 microg/kg/min; titrated to 200 microg/kg/min
     Route: 041
  5. ESMOLOL [Concomitant]
     Indication: ATRIAL TACHYCARDIA
     Dosage: 200 microg/kg/min
     Route: 041

REACTIONS (2)
  - Drug interaction [Recovered/Resolved]
  - Electrocardiogram QRS complex prolonged [Recovered/Resolved]
